FAERS Safety Report 8849654 (Version 1)
Quarter: 2012Q4

REPORT INFORMATION
  Report Type: 
  Country: ES (occurrence: ES)
  Receive Date: 20121019
  Receipt Date: 20121019
  Transmission Date: 20130627
  Serious: Yes (Hospitalization, Other)
  Sender: FDA-Public Use
  Company Number: ES-SHIRE-SPV1-2012-00897

PATIENT
  Age: 58 Year
  Sex: Male

DRUGS (2)
  1. XAGRID [Suspect]
     Indication: ESSENTIAL THROMBOCYTHAEMIA
     Dosage: 4 mg, 1x/day:qd
     Route: 048
  2. ACETYLSALICYLIC ACID [Concomitant]
     Indication: ESSENTIAL THROMBOCYTHAEMIA
     Dosage: 200 mg, 1x/day:qd
     Route: 048
     Dates: start: 200307

REACTIONS (2)
  - Respiratory arrest [Recovered/Resolved]
  - Supraventricular tachycardia [Recovered/Resolved]
